FAERS Safety Report 21764802 (Version 1)
Quarter: 2022Q4

REPORT INFORMATION
  Report Type: Report from Study
  Country: US (occurrence: US)
  Receive Date: 20221222
  Receipt Date: 20221222
  Transmission Date: 20230113
  Serious: Yes (Hospitalization)
  Sender: FDA-Public Use
  Company Number: US-EXELIXIS-XL18422058981

PATIENT

DRUGS (6)
  1. CABOZANTINIB [Suspect]
     Active Substance: CABOZANTINIB
     Indication: Solitary fibrous tumour
     Dosage: 40 MG, QD
     Route: 048
     Dates: start: 20220914, end: 20221206
  2. CABOZANTINIB [Suspect]
     Active Substance: CABOZANTINIB
     Dosage: 40 MG, QD
     Route: 048
     Dates: start: 20221208
  3. TEMOZOLOMIDE [Suspect]
     Active Substance: TEMOZOLOMIDE
     Indication: Solitary fibrous tumour
     Dosage: 100 MG/M2, FIRST 5 DAYS OF A 28 DAY CYCLE
     Route: 048
     Dates: start: 20220914, end: 20220919
  4. TEMOZOLOMIDE [Suspect]
     Active Substance: TEMOZOLOMIDE
     Dosage: 100 MG/M2, FIRST 5 DAYS OF A 28 DAY CYCLE
     Route: 048
     Dates: start: 20221109, end: 20221113
  5. TEMOZOLOMIDE [Suspect]
     Active Substance: TEMOZOLOMIDE
     Dosage: 100 MG/M2, FIRST 5 DAYS OF A 28 DAY CYCLE
     Route: 048
     Dates: end: 20221207
  6. LOVENOX [Suspect]
     Active Substance: ENOXAPARIN SODIUM
     Indication: Pulmonary embolism
     Dosage: 100 MG, BID
     Dates: start: 20221207

REACTIONS (1)
  - Haematoma [Not Recovered/Not Resolved]

NARRATIVE: CASE EVENT DATE: 20221214
